FAERS Safety Report 7919088-6 (Version None)
Quarter: 2011Q4

REPORT INFORMATION
  Report Type: 
  Country: None (occurrence: None)
  Receive Date: 20111116
  Receipt Date: 20111107
  Transmission Date: 20120403
  Serious: Yes (Other)
  Sender: FDA-Public Use
  Company Number: US-ASTRAZENECA-2011SE31306

PATIENT
  Age: 54 Year
  Sex: Female
  Weight: 83.9 kg

DRUGS (6)
  1. SEROQUEL [Suspect]
     Route: 048
  2. TRAZADLE [Concomitant]
     Indication: SLEEP DISORDER
     Route: 048
  3. SEROQUEL [Suspect]
     Route: 048
  4. CRESTOR [Suspect]
     Route: 048
  5. SEROQUEL [Suspect]
     Indication: BIPOLAR DISORDER
     Route: 048
     Dates: start: 20090101
  6. CLONAZEPAM [Concomitant]
     Indication: PANIC ATTACK
     Route: 048

REACTIONS (7)
  - SUICIDAL IDEATION [None]
  - VOMITING [None]
  - ACTIVITIES OF DAILY LIVING IMPAIRED [None]
  - BIPOLAR DISORDER [None]
  - INSOMNIA [None]
  - APHAGIA [None]
  - DRUG DOSE OMISSION [None]
